FAERS Safety Report 4681672-3 (Version None)
Quarter: 2005Q2

REPORT INFORMATION
  Report Type: 
  Country: None (occurrence: None)
  Receive Date: 20050602
  Receipt Date: 20050518
  Transmission Date: 20051028
  Serious: Yes (Hospitalization)
  Sender: FDA-Public Use
  Company Number: 2005BI008301

PATIENT
  Age: 50 Year
  Sex: Female

DRUGS (7)
  1. AVONEX [Suspect]
     Indication: MULTIPLE SCLEROSIS
     Dosage: QW; IM
     Route: 030
     Dates: start: 20030101
  2. ARICEPT [Concomitant]
  3. CYCLOBENZAPINE [Concomitant]
  4. LOPID [Concomitant]
  5. VOLTAREN [Concomitant]
  6. VALIUM [Concomitant]
  7. THYROID REPLACEMENT [Concomitant]

REACTIONS (1)
  - TRACHEAL OPERATION [None]
